FAERS Safety Report 13155880 (Version 1)
Quarter: 2017Q1

REPORT INFORMATION
  Report Type: Spontaneous
  Country: US (occurrence: US)
  Receive Date: 20170126
  Receipt Date: 20170126
  Transmission Date: 20170428
  Serious: No
  Sender: FDA-Public Use
  Company Number: US-ROCHE-675106

PATIENT
  Age: 52 Year
  Sex: Female
  Weight: 54.4 kg

DRUGS (2)
  1. NAPROXEN. [Suspect]
     Active Substance: NAPROXEN
     Indication: INTERVERTEBRAL DISC DEGENERATION
     Dosage: OTHER INDICATION INFLAMMATION IN NECK, 1 TAB UPTO 3 TIMES A DAY PRN
     Route: 048
  2. VALIUM [Suspect]
     Active Substance: DIAZEPAM
     Indication: PRODUCT USED FOR UNKNOWN INDICATION
     Dosage: ONCE IN THE EVENING AS NEEDED
     Route: 065

REACTIONS (1)
  - Drug screen positive [Recovered/Resolved]

NARRATIVE: CASE EVENT DATE: 20090728
